FAERS Safety Report 13641146 (Version 3)
Quarter: 2017Q4

REPORT INFORMATION
  Report Type: Report from Study
  Country: FR (occurrence: FR)
  Receive Date: 20170612
  Receipt Date: 20171004
  Transmission Date: 20180320
  Serious: Yes (Hospitalization)
  Sender: FDA-Public Use
  Company Number: FR-ROCHE-1944192

PATIENT
  Age: 60 Year
  Sex: Female
  Weight: 47 kg

DRUGS (14)
  1. OCRELIZUMAB. [Suspect]
     Active Substance: OCRELIZUMAB
     Indication: PRIMARY PROGRESSIVE MULTIPLE SCLEROSIS
     Dosage: ON DAY 1 AND DAY 15, EVERY 24 WEEKS CYCLE AND THEN ONE INFUSION EVERY 24 WEEKS (FREQUENCY AS PER PRO
     Route: 042
     Dates: start: 20151124
  2. ABUFENE [Concomitant]
     Indication: MENOPAUSE
     Route: 065
     Dates: start: 2010
  3. FAMPYRA [Concomitant]
     Active Substance: DALFAMPRIDINE
     Route: 065
     Dates: start: 20130814
  4. PARACETAMOL [Concomitant]
     Active Substance: ACETAMINOPHEN
     Indication: VIRAL UPPER RESPIRATORY TRACT INFECTION
     Dosage: SUBSEQUENT DOSES RECEIVED ON 02/APR/2012, 17/SEP/2012, 01/OCT/2012, 25/FEB/2013, 11/MAR/2013, 26/AUG
     Route: 065
     Dates: start: 20120319
  5. FORLAX [Concomitant]
     Active Substance: POLYETHYLENE GLYCOL 4000
     Indication: CONSTIPATION
     Route: 065
     Dates: start: 20160218
  6. FOSFOMYCINE [Concomitant]
     Active Substance: FOSFOMYCIN
     Indication: URINARY TRACT INFECTION
     Route: 065
     Dates: start: 20170216, end: 20170221
  7. GLYCERIN. [Concomitant]
     Active Substance: GLYCERIN
     Indication: CONSTIPATION
     Route: 065
     Dates: start: 20120104
  8. OCRELIZUMAB. [Suspect]
     Active Substance: OCRELIZUMAB
     Dosage: SUBSEQUENT DOSES RECEIVED ON: ON 11/APR/2017 (270 ML)
     Route: 042
     Dates: start: 20161025
  9. XYZALL [Concomitant]
     Active Substance: LEVOCETIRIZINE DIHYDROCHLORIDE
     Dosage: SUBSEQUENT DOSES RECEIVED ON 06/JAN/2015, 30/JUN/2015, 24/NOV/2015, 08/DEC/2015, 10/MAY/2016, 24/MAY
     Route: 065
     Dates: start: 20150106
  10. AERIUS [Concomitant]
     Active Substance: DESLORATADINE
     Dosage: SUBSEQUENT DOSES RECEIVED ON 23/JUL/2014 AND 20/JAN/2015
     Route: 065
     Dates: start: 20140709
  11. VESICARE [Concomitant]
     Active Substance: SOLIFENACIN SUCCINATE
     Route: 065
     Dates: start: 20150801
  12. OCRELIZUMAB. [Suspect]
     Active Substance: OCRELIZUMAB
     Indication: PRIMARY PROGRESSIVE MULTIPLE SCLEROSIS
     Dosage: ON DAY 1 AND DAY 15, EVERY 24 WEEKS (FREQUENCY AS PER PROTOCOL)?SUBSEQUENT DOSES RECEIVED ON 02/APR/
     Route: 042
     Dates: start: 20120319, end: 20151123
  13. METHYLPREDNISOLONE. [Concomitant]
     Active Substance: METHYLPREDNISOLONE
     Dosage: SUBSEQUENT DOSES RECEIVED ON 02/APR/2012, 17/SEP/2012, 01/OCT/2012, 25/FEB/2013, 11/MAR/2013, 26/AUG
     Route: 065
     Dates: start: 20120319
  14. POLARAMINE [Concomitant]
     Active Substance: DEXCHLORPHENIRAMINE MALEATE
     Dosage: SUBSEQUENT DOSES RECEIVED ON 02/APR/2012, 17/SEP/2012, 01/OCT/2012, 25/FEB/2013, 11/MAR/2013, 12/AUG
     Route: 065
     Dates: start: 20120319

REACTIONS (1)
  - Pyelonephritis acute [Recovered/Resolved]

NARRATIVE: CASE EVENT DATE: 20170515
